FAERS Safety Report 16940764 (Version 1)
Quarter: 2019Q4

REPORT INFORMATION
  Report Type: Spontaneous
  Country: FR (occurrence: FR)
  Receive Date: 20191021
  Receipt Date: 20191021
  Transmission Date: 20200122
  Serious: Yes (Death, Hospitalization, Other)
  Sender: FDA-Public Use
  Company Number: FR-ACTELION-A-CH2019-196727

PATIENT
  Age: 46 Year
  Sex: Male

DRUGS (1)
  1. EPOPROSTENOL SODIUM. [Suspect]
     Active Substance: EPOPROSTENOL SODIUM
     Indication: PULMONARY HYPERTENSION
     Route: 042

REACTIONS (5)
  - Post transplant lymphoproliferative disorder [Fatal]
  - Pulmonary thrombosis [Unknown]
  - Condition aggravated [Unknown]
  - Lung transplant [Unknown]
  - Right ventricular failure [Unknown]
